FAERS Safety Report 8791853 (Version 1)
Quarter: 2012Q4

REPORT INFORMATION
  Report Type: 
  Country: US (occurrence: US)
  Receive Date: 20120918
  Receipt Date: 20120918
  Transmission Date: 20130627
  Serious: Yes (Other)
  Sender: FDA-Public Use
  Company Number: US-ELI_LILLY_AND_COMPANY-US201209003126

PATIENT
  Age: 57 Year
  Sex: Male

DRUGS (7)
  1. CIALIS [Suspect]
     Indication: ERECTILE DYSFUNCTION
     Dosage: 20 mg, prn
  2. BYETTA [Concomitant]
  3. METFORMIN [Concomitant]
  4. LISINOPRIL [Concomitant]
  5. PROPANOLOL [Concomitant]
  6. BABY ASPIRIN [Concomitant]
  7. VITAMIN D [Concomitant]

REACTIONS (2)
  - Ammonia increased [Unknown]
  - Fatigue [Unknown]
